FAERS Safety Report 6442593-9 (Version None)
Quarter: 2009Q4

REPORT INFORMATION
  Report Type: 
  Country: None (occurrence: None)
  Receive Date: 20091117
  Receipt Date: 20091109
  Transmission Date: 20100525
  Serious: Yes (Hospitalization, Other)
  Sender: FDA-Public Use
  Company Number: US-BAYER-200936216NA

PATIENT
  Age: 41 Year
  Sex: Female
  Weight: 85 kg

DRUGS (3)
  1. MIRENA [Suspect]
     Indication: CONTRACEPTION
     Dosage: CONTINUOUS
     Route: 015
     Dates: start: 20090629
  2. CRESTOR [Concomitant]
     Indication: BLOOD CHOLESTEROL INCREASED
     Route: 048
  3. VASERETIC [Concomitant]
     Indication: HYPERTENSION
     Dosage: 10/ 25 MG
     Route: 048

REACTIONS (2)
  - DEVICE EXPULSION [None]
  - MENORRHAGIA [None]
